FAERS Safety Report 6856041-8 (Version None)
Quarter: 2010Q3

REPORT INFORMATION
  Report Type: 
  Country: None (occurrence: None)
  Receive Date: 20100716
  Receipt Date: 20100716
  Transmission Date: 20110219
  Serious: No
  Sender: FDA-Public Use
  Company Number: None

PATIENT
  Age: 54 Year
  Sex: Female
  Weight: 63.5036 kg

DRUGS (2)
  1. LEVOXYL [Suspect]
     Indication: HYPOTHYROIDISM
     Dosage: LEVOXYL  ONCE DAILY ORAL
     Route: 048
  2. SYNTHROID [Suspect]
     Dosage: SYNTHROID ONCE DAILY ORAL
     Route: 048

REACTIONS (1)
  - BACK PAIN [None]
